FAERS Safety Report 11467537 (Version 3)
Quarter: 2015Q4

REPORT INFORMATION
  Report Type: Spontaneous
  Country: DE (occurrence: DE)
  Receive Date: 20150908
  Receipt Date: 20151119
  Transmission Date: 20160304
  Serious: Yes (Other)
  Sender: FDA-Public Use
  Company Number: DE-AMGEN-DEUSP2015090998

PATIENT
  Age: 63 Year
  Sex: Male
  Weight: 96 kg

DRUGS (15)
  1. DOXAZOSIN [Concomitant]
     Active Substance: DOXAZOSIN\DOXAZOSIN MESYLATE
     Dosage: 1 UNIT IN EVENING
  2. DECORTIN [Concomitant]
     Active Substance: PREDNISONE
     Dosage: 0.5 UNIT IN MORNING, QOD
  3. ENALAPRIL [Concomitant]
     Active Substance: ENALAPRIL
     Dosage: 0.5 DF, BID
  4. AMLODIPINE MALEATE [Concomitant]
     Active Substance: AMLODIPINE MALEATE
     Dosage: 1 UNIT AT NIGHT
  5. NALTREXONE [Concomitant]
     Active Substance: NALTREXONE
     Dosage: UNK
     Route: 065
     Dates: start: 20121112
  6. OMEPRAZOL AL [Concomitant]
     Dosage: 1 UNIT IN MORNING
  7. ALLOPURINOL ALMUS [Concomitant]
     Dosage: 1 UNIT AT MORNING
  8. SANDIMMUN [Concomitant]
     Active Substance: CYCLOSPORINE
     Dosage: 75 UNIT IN MORNING AND 50 UNIT IN EVENING
  9. MIMPARA [Suspect]
     Active Substance: CINACALCET HYDROCHLORIDE
     Indication: HYPERPARATHYROIDISM
     Dosage: 30 MG, QD
     Route: 065
     Dates: start: 20080206
  10. CELLCEPT [Concomitant]
     Active Substance: MYCOPHENOLATE MOFETIL\MYCOPHENOLATE MOFETIL HYDROCHLORIDE
     Dosage: 2 DF, BID
  11. METOPROLOL [Concomitant]
     Active Substance: METOPROLOL
     Dosage: 1 DF, BID
  12. TORASEMID HEXAL [Concomitant]
     Dosage: 4 UNIT IN MORNING
  13. DEKRISTOL [Concomitant]
     Active Substance: CHOLECALCIFEROL
     Dosage: UNK UNK, Q4WK
  14. FLUVASTATIN [Concomitant]
     Active Substance: FLUVASTATIN SODIUM
     Dosage: 0.5 UNIT AT EVENING
  15. MARCUMAR [Concomitant]
     Active Substance: PHENPROCOUMON
     Dosage: AFTER QUICK APPROX. 0.25-0.5 / DAY, QD

REACTIONS (3)
  - Hypertension [Unknown]
  - Neoplasm malignant [Unknown]
  - Renal transplant [Unknown]

NARRATIVE: CASE EVENT DATE: 20071112
